FAERS Safety Report 8831775 (Version 1)
Quarter: 2012Q4

REPORT INFORMATION
  Report Type: 
  Country: BD (occurrence: BD)
  Receive Date: 20121009
  Receipt Date: 20121009
  Transmission Date: 20130627
  Serious: Yes (Other)
  Sender: FDA-Public Use
  Company Number: PHHY2012BD088942

PATIENT
  Age: 70 Year
  Sex: Female

DRUGS (4)
  1. ACLASTA [Suspect]
     Indication: OSTEOPOROSIS
     Dosage: 5 mg in 100 ml solution
     Route: 042
     Dates: start: 20080908
  2. ACLASTA [Suspect]
     Dosage: 5 mg in 100 ml solution
     Route: 042
  3. ACLASTA [Suspect]
     Dosage: 5 mg in 100 ml solution
     Route: 042
  4. ACLASTA [Suspect]
     Dosage: 5 mg in 100 ml solution
     Route: 042
     Dates: start: 20111001

REACTIONS (1)
  - Cerebrovascular accident [Not Recovered/Not Resolved]
